FAERS Safety Report 11744212 (Version 2)
Quarter: 2015Q4

REPORT INFORMATION
  Report Type: Spontaneous
  Country: DE (occurrence: DE)
  Receive Date: 20151116
  Receipt Date: 20151119
  Transmission Date: 20160304
  Serious: Yes (Other)
  Sender: FDA-Public Use
  Company Number: DE-SA-2015SA179487

PATIENT
  Age: 33 Year
  Sex: Female

DRUGS (2)
  1. METHYLPREDNISOLONE. [Concomitant]
     Active Substance: METHYLPREDNISOLONE
  2. ALEMTUZUMAB [Suspect]
     Active Substance: ALEMTUZUMAB
     Indication: RELAPSING-REMITTING MULTIPLE SCLEROSIS
     Route: 065

REACTIONS (8)
  - Chills [Unknown]
  - Thrombocytopenia [Recovered/Resolved]
  - Listeria sepsis [Unknown]
  - C-reactive protein increased [Unknown]
  - Pyrexia [Unknown]
  - Leukopenia [Recovered/Resolved]
  - White blood cell count increased [Unknown]
  - Procalcitonin increased [Unknown]
